FAERS Safety Report 15096028 (Version 1)
Quarter: 2018Q3

REPORT INFORMATION
  Report Type: Spontaneous
  Country: US (occurrence: US)
  Receive Date: 20180702
  Receipt Date: 20180702
  Transmission Date: 20181010
  Serious: Yes (Hospitalization)
  Sender: FDA-Public Use
  Company Number: US-STRIDES ARCOLAB LIMITED-2017SP012923

PATIENT

DRUGS (4)
  1. BASILIXIMAB [Suspect]
     Active Substance: BASILIXIMAB
     Indication: RENAL TRANSPLANT
     Dosage: UNK
     Route: 065
  2. PREDNISOLONE. [Suspect]
     Active Substance: PREDNISOLONE
     Indication: RENAL TRANSPLANT
     Dosage: UNK
     Route: 065
  3. MYCOPHENOLATE MOFETIL. [Suspect]
     Active Substance: MYCOPHENOLATE MOFETIL
     Indication: RENAL TRANSPLANT
     Dosage: UNK
     Route: 065
  4. TACROLIMUS. [Suspect]
     Active Substance: TACROLIMUS
     Indication: RENAL TRANSPLANT
     Dosage: UNK
     Route: 065

REACTIONS (13)
  - Wound decomposition [Unknown]
  - Diarrhoea [Recovered/Resolved]
  - Testicular pain [Unknown]
  - Hypoxia [Unknown]
  - Hepatitis acute [Recovered/Resolved]
  - Pyrexia [Unknown]
  - Memory impairment [Recovered/Resolved]
  - Choriomeningitis lymphocytic [Recovered/Resolved]
  - Decreased appetite [Unknown]
  - Mental status changes [Recovered/Resolved]
  - Pancytopenia [Unknown]
  - Abdominal pain lower [Unknown]
  - Abdominal pain [Unknown]
